FAERS Safety Report 8598842-4 (Version None)
Quarter: 2012Q3

REPORT INFORMATION
  Report Type: 
  Country: None (occurrence: None)
  Receive Date: 20120816
  Receipt Date: 20120809
  Transmission Date: 20120928
  Serious: Yes (Hospitalization)
  Sender: FDA-Public Use
  Company Number: FR-GLAXOSMITHKLINE-B0821733A

PATIENT
  Sex: Female

DRUGS (6)
  1. JANUMET [Concomitant]
     Route: 065
  2. TANGANIL [Concomitant]
     Route: 065
  3. DIAMICRON [Concomitant]
     Route: 065
  4. PREVISCAN [Concomitant]
     Route: 065
  5. SOTALOL HCL [Concomitant]
     Route: 065
  6. PAROXETINE HCL [Suspect]
     Indication: DEPRESSION
     Dosage: 20MG IN THE MORNING
     Route: 048
     Dates: start: 20120518, end: 20120522

REACTIONS (2)
  - HALLUCINATION, AUDITORY [None]
  - PERSECUTORY DELUSION [None]
